FAERS Safety Report 9130753 (Version 2)
Quarter: 2013Q2

REPORT INFORMATION
  Report Type: Spontaneous
  Country: FR (occurrence: FR)
  Receive Date: 20130301
  Receipt Date: 20130410
  Transmission Date: 20140414
  Serious: Yes (Hospitalization)
  Sender: FDA-Public Use
  Company Number: PHHY2013FR019994

PATIENT
  Age: 83 Year
  Sex: Female

DRUGS (7)
  1. EXELON PATCH [Suspect]
     Indication: DEMENTIA ALZHEIMER^S TYPE
     Dosage: 1 DF, QD
     Route: 062
     Dates: end: 20130207
  2. EBIXA [Concomitant]
     Dosage: UNK UKN, UNK
  3. TOPALGIC//TRAMADOL HYDROCHLORIDE [Concomitant]
     Dosage: UNK UKN, UNK
  4. COAPROVEL [Concomitant]
     Indication: HYPERTENSION
     Dosage: 300 MG, QD
  5. CORDARONE [Concomitant]
     Dosage: UNK UKN, UNK
  6. PREVISCAN [Concomitant]
     Indication: ATRIAL FIBRILLATION
     Dosage: UNK UKN, UNK
  7. INSULATARD [Concomitant]
     Dosage: UNK UKN, UNK

REACTIONS (2)
  - Wrist fracture [Unknown]
  - Fall [Unknown]
